FAERS Safety Report 4854801-6 (Version None)
Quarter: 2005Q4

REPORT INFORMATION
  Report Type: 
  Country: None (occurrence: None)
  Receive Date: 20051214
  Receipt Date: 20051214
  Transmission Date: 20060501
  Serious: Yes (Hospitalization)
  Sender: FDA-Public Use
  Company Number: None

PATIENT
  Sex: Female

DRUGS (3)
  1. RITUXIMAB [Suspect]
     Indication: DIFFUSE LARGE B-CELL LYMPHOMA
     Dosage: DAY 1 OF 21 DAY CYCLE
     Route: 041
  2. VELCADE [Suspect]
     Indication: DIFFUSE LARGE B-CELL LYMPHOMA
     Dosage: DAY 1 +4 OF A 21 DAY CYCLE
     Route: 042
  3. CHOP [Suspect]

REACTIONS (8)
  - CARDIAC DISORDER [None]
  - FALL [None]
  - HAEMORRHAGE [None]
  - HEAD INJURY [None]
  - LACERATION [None]
  - LOCALISED INFECTION [None]
  - SINUS TACHYCARDIA [None]
  - SYNCOPE [None]
